FAERS Safety Report 12039405 (Version 1)
Quarter: 2016Q1

REPORT INFORMATION
  Report Type: Spontaneous
  Country: US (occurrence: None)
  Receive Date: 20160205
  Receipt Date: 20160205
  Transmission Date: 20160526
  Serious: Yes (Hospitalization)
  Sender: FDA-Public Use
  Company Number: None

PATIENT
  Age: 60 Year
  Sex: Male

DRUGS (1)
  1. ENTECAVIR 0.5MG TAB [Suspect]
     Active Substance: ENTECAVIR
     Indication: HEPATITIS B
     Dosage: 1 TAB DAILY PO
     Route: 048
     Dates: start: 20150415

REACTIONS (2)
  - Ascites [None]
  - Liver transplant [None]

NARRATIVE: CASE EVENT DATE: 20151220
